FAERS Safety Report 18506181 (Version 1)
Quarter: 2020Q4

REPORT INFORMATION
  Report Type: Spontaneous
  Country: US (occurrence: US)
  Receive Date: 20201116
  Receipt Date: 20201116
  Transmission Date: 20210114
  Serious: No
  Sender: FDA-Public Use
  Company Number: US-PFIZER INC-2020413653

PATIENT
  Age: 67 Year
  Sex: Female

DRUGS (3)
  1. IBRANCE [Suspect]
     Active Substance: PALBOCICLIB
     Indication: HEAD AND NECK CANCER
     Dosage: 125 MG, 1X/DAY (1 CAP PEG TUBE ONCE A DAY)
  2. IBRANCE [Suspect]
     Active Substance: PALBOCICLIB
     Indication: THROAT CANCER
  3. CETUXIMAB. [Concomitant]
     Active Substance: CETUXIMAB
     Indication: HEAD AND NECK CANCER
     Dosage: UNK

REACTIONS (2)
  - Off label use [Unknown]
  - Neoplasm progression [Unknown]
